FAERS Safety Report 8445585 (Version 2)
Quarter: 2014Q1

REPORT INFORMATION
  Report Type: Spontaneous
  Country: US (occurrence: US)
  Receive Date: 20120307
  Receipt Date: 20140117
  Transmission Date: 20141002
  Serious: Yes (Hospitalization, Disabling)
  Sender: FDA-Public Use
  Company Number: US-GLAXOSMITHKLINE-A0932373A

PATIENT
  Age: 60 Year
  Sex: Male

DRUGS (1)
  1. AVANDAMET [Suspect]
     Indication: DIABETES MELLITUS
     Route: 048
     Dates: start: 2002, end: 2007

REACTIONS (6)
  - Coronary artery disease [Not Recovered/Not Resolved]
  - Cardiovascular disorder [Unknown]
  - Cardiac operation [Unknown]
  - Vascular graft [Unknown]
  - Pleural effusion [Unknown]
  - Fatigue [Unknown]
